FAERS Safety Report 5756695-3 (Version None)
Quarter: 2008Q2

REPORT INFORMATION
  Report Type: 
  Country: None (occurrence: None)
  Receive Date: 20080603
  Receipt Date: 20080527
  Transmission Date: 20081010
  Serious: Yes (Death)
  Sender: FDA-Public Use
  Company Number: US-ROCHE-566896

PATIENT
  Age: 68 Year
  Sex: Male

DRUGS (3)
  1. XELODA [Suspect]
     Indication: NEOPLASM
     Dosage: PATIENT COMPLETED TWO COURSES OF TREATMENT.
     Route: 065
     Dates: end: 20070822
  2. TAXOTERE [Suspect]
     Indication: NEOPLASM
     Dosage: PATIENT COMPLETED TWO COURSES OF TREATMENT.
     Route: 065
     Dates: start: 20070901
  3. ERBITUX [Suspect]
     Indication: NEOPLASM
     Route: 065

REACTIONS (2)
  - DEATH [None]
  - STOMATITIS [None]
